FAERS Safety Report 15655353 (Version 4)
Quarter: 2018Q4

REPORT INFORMATION
  Report Type: Spontaneous
  Country: JP (occurrence: JP)
  Receive Date: 20181126
  Receipt Date: 20181220
  Transmission Date: 20190205
  Serious: Yes (Hospitalization)
  Sender: FDA-Public Use
  Company Number: JP-ASTRAZENECA-2018SF53518

PATIENT
  Age: 62 Year
  Sex: Female
  Weight: 68 kg

DRUGS (3)
  1. NOLVADEX [Suspect]
     Active Substance: TAMOXIFEN CITRATE
     Indication: BREAST CANCER FEMALE
     Route: 048
     Dates: start: 20181026
  2. CALONAL [Concomitant]
     Active Substance: ACETAMINOPHEN
     Route: 048
     Dates: start: 20181116, end: 20181116
  3. FASLODEX [Suspect]
     Active Substance: FULVESTRANT
     Indication: BREAST CANCER FEMALE
     Route: 030
     Dates: start: 20181115

REACTIONS (6)
  - Nasopharyngitis [Recovered/Resolved]
  - Pyrexia [Recovered/Resolved]
  - Nausea [Recovered/Resolved]
  - Chills [Recovered/Resolved]
  - Hepatic function abnormal [Recovered/Resolved]
  - Hypersensitivity [Recovered/Resolved]

NARRATIVE: CASE EVENT DATE: 20181105
